FAERS Safety Report 9510978 (Version 1)
Quarter: 2013Q3

REPORT INFORMATION
  Report Type: Spontaneous
  Country: US (occurrence: None)
  Receive Date: 20130909
  Receipt Date: 20130909
  Transmission Date: 20140515
  Serious: Yes (Death)
  Sender: FDA-Public Use
  Company Number: None

PATIENT
  Age: 84 Year
  Sex: Female

DRUGS (1)
  1. FRAGMIN [Suspect]
     Indication: OVARIAN CANCER
     Dosage: 1 SYRINGE QD SUBCUTANEOUS
     Route: 058
     Dates: start: 20111222, end: 20130523

REACTIONS (1)
  - Death [None]
